FAERS Safety Report 7855655 (Version 2)
Quarter: 2012Q4

REPORT INFORMATION
  Report Type: 
  Country: US (occurrence: US)
  Receive Date: 20110315
  Receipt Date: 20121010
  Transmission Date: 20130627
  Serious: Yes (Hospitalization, Other)
  Sender: FDA-Public Use
  Company Number: US-ELI_LILLY_AND_COMPANY-US201103003342

PATIENT
  Sex: Female

DRUGS (8)
  1. BYETTA [Suspect]
  2. FENTANYL [Concomitant]
  3. PHENERGAN [Concomitant]
  4. KLOR-CON [Concomitant]
  5. CYMBALTA [Concomitant]
  6. LISINOPRIL [Concomitant]
  7. ZANAFLEX [Concomitant]
  8. VALIUM [Concomitant]

REACTIONS (1)
  - Pancreatitis [Unknown]
